FAERS Safety Report 7310132-6 (Version None)
Quarter: 2011Q1

REPORT INFORMATION
  Report Type: 
  Country: None (occurrence: None)
  Receive Date: 20110224
  Receipt Date: 20110215
  Transmission Date: 20110831
  Serious: No
  Sender: FDA-Public Use
  Company Number: US-PFIZER INC-2011004155

PATIENT
  Sex: Female

DRUGS (3)
  1. VITAMIN D [Concomitant]
     Dosage: 1000 UNITS/SPRAY
  2. SERTRALINE HYDROCHLORIDE [Suspect]
     Indication: DEPRESSION
     Dosage: 1 ML, 1X/DAY
     Route: 048
     Dates: start: 20101001
  3. SERTRALINE HYDROCHLORIDE [Suspect]
     Dosage: 2.5 ML, 1X/DAY

REACTIONS (2)
  - DYSGEUSIA [None]
  - CIRCUMSTANCE OR INFORMATION CAPABLE OF LEADING TO MEDICATION ERROR [None]
